FAERS Safety Report 4646188-9 (Version None)
Quarter: 2005Q2

REPORT INFORMATION
  Report Type: 
  Country: None (occurrence: None)
  Receive Date: 20050422
  Receipt Date: 20050415
  Transmission Date: 20051028
  Serious: Yes (Hospitalization)
  Sender: FDA-Public Use
  Company Number: CHPA2005US01139

PATIENT
  Age: 76 Year
  Sex: Female
  Weight: 90.7 kg

DRUGS (6)
  1. BENEFIBER FIBER SUPPLEMENT SUGAR GREE (NCH) (GUAR GUM) POWDER [Suspect]
     Indication: LAXATIVE SUPPORTIVE CARE
     Dosage: SEE IMAGE
     Route: 048
     Dates: end: 20050407
  2. BENEFIBER FIBER SUPPLEMENT SUGAR GREE (NCH) (GUAR GUM) POWDER [Suspect]
     Indication: LAXATIVE SUPPORTIVE CARE
     Dosage: SEE IMAGE
     Route: 048
     Dates: start: 20050408, end: 20050410
  3. BENEFIBER FIBER SUPPLEMENT SUGAR GREE (NCH) (GUAR GUM) POWDER [Suspect]
     Indication: LAXATIVE SUPPORTIVE CARE
     Dosage: SEE IMAGE
     Route: 048
     Dates: start: 20050411
  4. THORAZINE [Concomitant]
  5. XANAX [Concomitant]
  6. LORTAB [Concomitant]

REACTIONS (8)
  - DIFFICULTY IN WALKING [None]
  - FLUID RETENTION [None]
  - MEDICATION ERROR [None]
  - OEDEMA PERIPHERAL [None]
  - OFF LABEL USE [None]
  - OVERDOSE [None]
  - PAIN [None]
  - PNEUMONIA [None]
